FAERS Safety Report 4764618-9 (Version None)
Quarter: 2005Q3

REPORT INFORMATION
  Report Type: 
  Country: None (occurrence: None)
  Receive Date: 20050909
  Receipt Date: 20050804
  Transmission Date: 20060218
  Serious: Yes (Life-Threatening)
  Sender: FDA-Public Use
  Company Number: 2005AP04304

PATIENT
  Age: 16924 Day
  Sex: Female

DRUGS (12)
  1. NOLVADEX [Suspect]
     Indication: BREAST CANCER
     Route: 048
     Dates: start: 20050307, end: 20050725
  2. TATHION [Concomitant]
     Indication: HEPATIC FUNCTION ABNORMAL
     Route: 048
     Dates: start: 20050627
  3. LOXONIN [Concomitant]
     Indication: ANALGESIC THERAPY
     Route: 048
     Dates: start: 20050711, end: 20050725
  4. SELBEX [Concomitant]
     Indication: GASTRIC MUCOSAL LESION
     Route: 048
     Dates: start: 20050711, end: 20050725
  5. ARIMIDEX [Concomitant]
     Route: 048
     Dates: start: 20041201, end: 20050307
  6. ADRIACIN [Concomitant]
  7. VINDESINE [Concomitant]
  8. DOXORUBICIN [Concomitant]
  9. CISPLATIN [Concomitant]
  10. FLUOROURACIL [Concomitant]
  11. DACARBAZINE [Concomitant]
  12. ETOPOSIDE [Concomitant]

REACTIONS (7)
  - ALANINE AMINOTRANSFERASE INCREASED [None]
  - ASPARTATE AMINOTRANSFERASE INCREASED [None]
  - BLOOD BILIRUBIN INCREASED [None]
  - HEPATITIS ALCOHOLIC [None]
  - JAUNDICE [None]
  - LIVER DISORDER [None]
  - METASTASES TO BONE [None]
